FAERS Safety Report 5405622-7 (Version None)
Quarter: 2007Q3

REPORT INFORMATION
  Report Type: 
  Country: None (occurrence: None)
  Receive Date: 20070806
  Receipt Date: 20070730
  Transmission Date: 20080115
  Serious: Yes (Other)
  Sender: FDA-Public Use
  Company Number: PHBS2007JP12287

PATIENT
  Age: 74 Year
  Sex: Female

DRUGS (2)
  1. LOXOPROFEN SODIUM [Suspect]
     Indication: BACK PAIN
     Dosage: 180 MG/DAY
     Route: 048
  2. DICLOFENAC SODIUM [Suspect]
     Indication: BACK PAIN
     Dosage: 50 MG/DAY
     Route: 048

REACTIONS (3)
  - ABDOMINAL PAIN [None]
  - LARGE INTESTINAL STRICTURE [None]
  - LARGE INTESTINAL ULCER [None]
